FAERS Safety Report 7407081-1 (Version None)
Quarter: 2011Q2

REPORT INFORMATION
  Report Type: 
  Country: None (occurrence: None)
  Receive Date: 20110411
  Receipt Date: 20110329
  Transmission Date: 20111010
  Serious: Yes (Hospitalization)
  Sender: FDA-Public Use
  Company Number: FR-ROCHE-769491

PATIENT
  Sex: Male

DRUGS (21)
  1. MORPHINE [Suspect]
     Route: 042
     Dates: start: 20110128, end: 20110128
  2. MIRTAZAPINE [Concomitant]
     Dosage: 2 DOSES IN THE EVENING
  3. FORLAX [Concomitant]
  4. SPASFON [Concomitant]
  5. MELAXOSE [Concomitant]
  6. LANSOPRAZOLE [Concomitant]
     Dosage: 1 DOSE IN THE EVENING
  7. SOLU-MEDROL [Suspect]
     Dosage: DRUG REPORTED AS SOLUMEDROL
     Route: 042
     Dates: start: 20110128, end: 20110201
  8. OMEXEL [Concomitant]
     Dosage: OMEXEL 0.4, 1 DOSE IN THE MORNING
  9. RIVOTRIL [Concomitant]
     Dosage: AT BEDTIME
  10. VALIUM [Suspect]
     Dosage: DOSE 5 MG IN 8 HOURS
     Route: 042
     Dates: start: 20110128, end: 20110201
  11. CLAFORAN [Suspect]
     Dosage: DOSE 6 G IN 24 HOURS
     Route: 042
     Dates: start: 20110202, end: 20110204
  12. ATENOLOL [Concomitant]
     Dosage: ATENOLOL 50, 1 DOSE IN THE MORNING
  13. ACETAMINOPHEN [Concomitant]
  14. BRISTOPEN [Suspect]
     Dosage: DOSE 8 G IN 24 HOURS
     Route: 042
     Dates: start: 20110204
  15. LEVOTHYROX [Concomitant]
     Dosage: LEVOTHYROX 125, 1 DOSE IN THE MORNING
  16. EZETIMIBE [Concomitant]
     Dosage: EZETROL 10, 1 DOSE IN THE EVENING
  17. CYMBALTA [Concomitant]
     Dosage: CYMBALTA 60, 1 DOSE IN THE MORNING
  18. LYRICA [Concomitant]
     Dosage: LYRICA 25, 1 DOSE IN MORNING, 1 DOSE AT LUNCHTIME AND 1 DOSE IN THE EVENING
  19. GENTAMICIN [Suspect]
     Dosage: DOSE 320 MG IN 24 HOURS
     Route: 042
     Dates: start: 20110202, end: 20110215
  20. ORBENIN CAP [Suspect]
     Dosage: DOSE 8 G IN 24 HOURS
     Route: 042
     Dates: start: 20110204
  21. AMLODIPINE BESYLATE [Concomitant]
     Dosage: AMLOR 5

REACTIONS (2)
  - CATHETER SITE PHLEBITIS [None]
  - THROMBOPHLEBITIS SUPERFICIAL [None]
